FAERS Safety Report 10457092 (Version 1)
Quarter: 2014Q3

REPORT INFORMATION
  Report Type: Spontaneous
  Country: HR (occurrence: HR)
  Receive Date: 20140916
  Receipt Date: 20140916
  Transmission Date: 20150326
  Serious: Yes (Hospitalization)
  Sender: FDA-Public Use
  Company Number: HR-TEVA-508471ISR

PATIENT
  Sex: Female
  Weight: 68 kg

DRUGS (3)
  1. BLASTOMAT [Concomitant]
     Indication: GLIOBLASTOMA
     Dosage: 120 MILLIGRAM DAILY;
     Route: 048
     Dates: start: 201407, end: 20140814
  2. G-CSF (TEVAGRASTIM/RATIOGRASTIM) [Suspect]
     Active Substance: FILGRASTIM
     Indication: NEUTROPENIA
     Route: 058
     Dates: start: 20140818
  3. SINERSUL FORTE TABLETE [Concomitant]
     Dosage: 1 DOSAGE FORMS DAILY;
     Route: 048
     Dates: start: 20140730, end: 20140821

REACTIONS (2)
  - Drug ineffective [Unknown]
  - White blood cell count decreased [Unknown]

NARRATIVE: CASE EVENT DATE: 2014
